FAERS Safety Report 7005478-5 (Version None)
Quarter: 2010Q3

REPORT INFORMATION
  Report Type: 
  Country: None (occurrence: None)
  Receive Date: 20100921
  Receipt Date: 20100909
  Transmission Date: 20110219
  Serious: Yes (Hospitalization)
  Sender: FDA-Public Use
  Company Number: DE-ROCHE-727918

PATIENT
  Sex: Female
  Weight: 81.8 kg

DRUGS (10)
  1. BEVACIZUMAB [Suspect]
     Dosage: 3RD CYCLE
     Route: 042
     Dates: start: 20091008, end: 20100211
  2. BEVACIZUMAB [Suspect]
     Route: 042
     Dates: end: 20100729
  3. FOLINIC ACID [Concomitant]
     Dosage: 3RD CYCLE
     Route: 042
     Dates: start: 20091008, end: 20100211
  4. FOLINIC ACID [Concomitant]
     Route: 042
     Dates: end: 20100729
  5. FLUOROURACIL [Concomitant]
     Dosage: 3RD CYCLE
     Route: 042
     Dates: start: 20091008, end: 20100211
  6. FLUOROURACIL [Concomitant]
     Route: 042
     Dates: end: 20100729
  7. KEVATRIL [Concomitant]
     Indication: ANTIEMETIC SUPPORTIVE CARE
     Route: 042
  8. VERGENTAN [Concomitant]
     Indication: ANTIEMETIC SUPPORTIVE CARE
     Route: 048
  9. DEXAMETHASONE TAB [Concomitant]
     Indication: ANTIEMETIC SUPPORTIVE CARE
     Route: 042
  10. VOMEX A [Concomitant]
     Indication: ANTIEMETIC SUPPORTIVE CARE
     Dosage: IF REQUIRED
     Route: 054

REACTIONS (1)
  - CYSTITIS VIRAL [None]
